FAERS Safety Report 6733698-3 (Version None)
Quarter: 2010Q2

REPORT INFORMATION
  Report Type: 
  Country: None (occurrence: None)
  Receive Date: 20100520
  Receipt Date: 20100512
  Transmission Date: 20101027
  Serious: Yes (Hospitalization, Other)
  Sender: FDA-Public Use
  Company Number: OM-BAYER-201025135GPV

PATIENT
  Age: 38 Year
  Sex: Male

DRUGS (12)
  1. ASPIRIN [Suspect]
     Indication: MYOCARDIAL INFARCTION
     Route: 065
  2. CLOPIDOGREL [Suspect]
     Indication: MYOCARDIAL INFARCTION
     Route: 065
  3. CLOPIDOGREL [Suspect]
     Route: 065
  4. ATENOLOL [Concomitant]
     Indication: MYOCARDIAL INFARCTION
     Route: 065
  5. SIMVASTATIN [Concomitant]
     Indication: MYOCARDIAL INFARCTION
     Route: 065
  6. TIROFIBAN [Concomitant]
     Indication: ANTICOAGULANT THERAPY
     Route: 065
  7. TIROFIBAN [Concomitant]
     Route: 065
  8. UNFRACTIONED HEPARIN [Concomitant]
     Indication: ANTICOAGULANT THERAPY
     Route: 065
  9. UNFRACTIONED HEPARIN [Concomitant]
     Route: 065
  10. UNFRACTIONED HEPARIN [Concomitant]
     Route: 065
  11. ENOXAPARIN SODIUM [Concomitant]
     Indication: ANTICOAGULANT THERAPY
     Route: 065
  12. RETEPLASE [Concomitant]
     Indication: THROMBOLYSIS
     Dosage: 10 UNITS OF RETEPLASE
     Route: 040

REACTIONS (3)
  - CEREBRAL HAEMATOMA [None]
  - CORONARY ARTERY OCCLUSION [None]
  - PULMONARY EMBOLISM [None]
